FAERS Safety Report 18447130 (Version 3)
Quarter: 2020Q4

REPORT INFORMATION
  Report Type: Spontaneous
  Country: FR (occurrence: FR)
  Receive Date: 20201030
  Receipt Date: 20201231
  Transmission Date: 20210114
  Serious: Yes (Hospitalization, Other)
  Sender: FDA-Public Use
  Company Number: FR-ALLERGAN-2040895US

PATIENT
  Sex: Female

DRUGS (7)
  1. NEURONTIN [Concomitant]
     Active Substance: GABAPENTIN
     Indication: NEUROPATHY PERIPHERAL
     Dosage: 600 MG, QD
     Route: 065
  2. RIVOTRIL [Concomitant]
     Active Substance: CLONAZEPAM
     Indication: NEUROPATHY PERIPHERAL
     Dosage: 15 DROPS, 1X/DAY, 2.5 MG/1 ML EVENINGS
     Route: 065
  3. FLIXABI [Suspect]
     Active Substance: INFLIXIMAB
     Indication: CROHN^S DISEASE
     Dosage: 10 MG/KG, FREQ:6 WK;
     Route: 042
     Dates: start: 20180309, end: 20200204
  4. CEFTAZIDIME;AVIBACTAM - BP [Suspect]
     Active Substance: AVIBACTAM SODIUM\CEFTAZIDIME
     Indication: PYELONEPHRITIS ACUTE
     Dosage: 1G, LOADING DOSE
     Route: 065
     Dates: start: 20191116
  5. CEFTAZIDIME;AVIBACTAM - BP [Suspect]
     Active Substance: AVIBACTAM SODIUM\CEFTAZIDIME
     Dosage: 3 G, QD
     Route: 042
  6. AMLODIPINE [Concomitant]
     Active Substance: AMLODIPINE BESYLATE
     Indication: HYPERTENSION
     Dosage: 10 MG, QAM
     Route: 065
  7. METFORMIN [Concomitant]
     Active Substance: METFORMIN HYDROCHLORIDE
     Indication: TYPE 2 DIABETES MELLITUS
     Dosage: 3000 MG, QD
     Route: 065

REACTIONS (22)
  - Complication associated with device [Unknown]
  - Hypoxia [Unknown]
  - Haematuria [Recovered/Resolved]
  - Cystitis [Recovered/Resolved]
  - Confusional state [Recovered/Resolved]
  - Pyelonephritis acute [Unknown]
  - Inflammation [Unknown]
  - Sepsis [Recovered/Resolved]
  - Herpes simplex pharyngitis [Unknown]
  - Renal failure [Unknown]
  - Hyperkalaemia [Unknown]
  - Crohn^s disease [Recovered/Resolved]
  - Overdose [Unknown]
  - Factor XII deficiency [Unknown]
  - Normocytic anaemia [Recovering/Resolving]
  - Diabetes mellitus inadequate control [Recovered/Resolved]
  - Hyperglycaemia [Recovered/Resolved]
  - Pyrexia [Recovered/Resolved]
  - Urinary sediment abnormal [Unknown]
  - Dyspnoea [Unknown]
  - Septic encephalopathy [Unknown]
  - Extra dose administered [Unknown]

NARRATIVE: CASE EVENT DATE: 20190417
